FAERS Safety Report 20512695 (Version 2)
Quarter: 2022Q4

REPORT INFORMATION
  Report Type: Spontaneous
  Country: ES (occurrence: ES)
  Receive Date: 20220224
  Receipt Date: 20221010
  Transmission Date: 20230113
  Serious: Yes (Other)
  Sender: FDA-Public Use
  Company Number: ES-PFIZER INC-202200277955

PATIENT
  Age: 65 Year
  Sex: Male
  Weight: 68 kg

DRUGS (17)
  1. CYTARABINE [Suspect]
     Active Substance: CYTARABINE
     Indication: Mantle cell lymphoma stage III
     Dosage: ON DAYS 4 AND 5 FOR 3 CYCLES
  2. CYTARABINE [Suspect]
     Active Substance: CYTARABINE
     Dosage: ON DAYS 2-5
  3. RITUXIMAB [Concomitant]
     Active Substance: RITUXIMAB
     Indication: Mantle cell lymphoma stage III
     Dosage: 3 CYCLES
  4. RITUXIMAB [Concomitant]
     Active Substance: RITUXIMAB
     Dosage: 3 CYCLES
  5. VINCRISTINE [Concomitant]
     Active Substance: VINCRISTINE
     Indication: Mantle cell lymphoma stage III
     Dosage: 3 CYCLES
  6. DOXORUBICIN [Concomitant]
     Active Substance: DOXORUBICIN
     Indication: Mantle cell lymphoma stage III
     Dosage: 3 CYCLES
  7. CYCLOPHOSPHAMIDE [Concomitant]
     Active Substance: CYCLOPHOSPHAMIDE
     Indication: Mantle cell lymphoma stage III
     Dosage: ON DAY 1 FOR 3 CYCLES
  8. PREDNISONE [Concomitant]
     Active Substance: PREDNISONE
     Indication: Mantle cell lymphoma stage III
     Dosage: ON DAYS 1-5 FOR 3 CYCLES
  9. PREDNISONE [Concomitant]
     Active Substance: PREDNISONE
     Indication: Tonsillar hypertrophy
     Dosage: 1 MG/KG, DAILY
     Route: 048
  10. CISPLATIN [Concomitant]
     Active Substance: CISPLATIN
     Indication: Mantle cell lymphoma stage III
     Dosage: FOR 3 CYCLES
  11. DEXAMETHASONE [Concomitant]
     Active Substance: DEXAMETHASONE
     Indication: Mantle cell lymphoma stage III
     Dosage: 20 MG, 2X/DAY
  12. PIPERACILLIN AND TAZOBACTAM [Concomitant]
     Active Substance: PIPERACILLIN SODIUM\TAZOBACTAM SODIUM
     Dosage: UNK
  13. AMIKACIN [Concomitant]
     Active Substance: AMIKACIN
     Dosage: UNK
  14. BETAHISTINE [Concomitant]
     Active Substance: BETAHISTINE
     Indication: Vertigo
     Dosage: 8 MG, 3X/DAY
  15. SULPIRIDE [Concomitant]
     Active Substance: SULPIRIDE
     Indication: Vertigo
     Dosage: 50 MG
     Route: 030
  16. CIPROFLOXACIN [Concomitant]
     Active Substance: CIPROFLOXACIN
     Dosage: UNK
     Route: 048
  17. GRANULOCYTE COLONY-STIMULATING FACTOR NOS [Concomitant]
     Active Substance: GRANULOCYTE COLONY-STIMULATING FACTOR NOS

REACTIONS (2)
  - Cerebellar syndrome [Unknown]
  - Off label use [Unknown]
